FAERS Safety Report 7370237-0 (Version None)
Quarter: 2011Q1

REPORT INFORMATION
  Report Type: 
  Country: None (occurrence: None)
  Receive Date: 20110323
  Receipt Date: 20110311
  Transmission Date: 20110831
  Serious: Yes (Hospitalization)
  Sender: FDA-Public Use
  Company Number: PHHO2011US04532

PATIENT
  Sex: Female
  Weight: 60 kg

DRUGS (4)
  1. CARBOPLATIN [Suspect]
     Indication: METASTATIC MALIGNANT MELANOMA
     Dosage: AUC 5, DY 1 EVERY 28 DAYS
     Route: 042
     Dates: start: 20110118
  2. AFINITOR [Suspect]
     Indication: METASTATIC MALIGNANT MELANOMA
     Dosage: 5 MG, DYS 1-5, 8-12,15-19,22-26
     Route: 048
     Dates: start: 20110118
  3. BEVACIZUMAB [Suspect]
     Indication: METASTATIC MALIGNANT MELANOMA
     Dosage: 10 MG/KG, DYS 1 AND 15 EVERY 28 DYS
     Route: 042
     Dates: start: 20110118
  4. PACLITAXEL [Suspect]
     Indication: METASTATIC MALIGNANT MELANOMA
     Dosage: 80 MG/M2, DYS 1, 8 AND 15 EVERY 28 DYS
     Route: 042
     Dates: start: 20110118

REACTIONS (6)
  - CEREBRAL HAEMATOMA [None]
  - BRAIN HERNIATION [None]
  - CRANIECTOMY [None]
  - HYPERTENSION [None]
  - THROMBOCYTOPENIA [None]
  - FALL [None]
